FAERS Safety Report 8135118-3 (Version None)
Quarter: 2012Q1

REPORT INFORMATION
  Report Type: 
  Country: None (occurrence: None)
  Receive Date: 20120214
  Receipt Date: 20120206
  Transmission Date: 20120608
  Serious: Yes (Hospitalization)
  Sender: FDA-Public Use
  Company Number: US-BAYER-2011-099093

PATIENT
  Age: 23 Year
  Sex: Female
  Weight: 52.608 kg

DRUGS (4)
  1. POTASSIUM CHLORIDE [Concomitant]
     Indication: SUPPLEMENTATION THERAPY
     Dosage: UNK
     Route: 048
     Dates: start: 20090101
  2. BACTRIM [Concomitant]
     Indication: ACNE
     Dosage: UNK UNK, BID
     Route: 048
     Dates: start: 20010101, end: 20090101
  3. YASMIN [Suspect]
     Indication: ACNE
     Dosage: UNK
     Dates: start: 20040808, end: 20041007
  4. YAZ [Suspect]
     Indication: ACNE
     Dosage: UNK
     Dates: start: 20090715, end: 20090930

REACTIONS (6)
  - PULMONARY INFARCTION [None]
  - INJURY [None]
  - EMOTIONAL DISTRESS [None]
  - ANHEDONIA [None]
  - PULMONARY EMBOLISM [None]
  - PAIN [None]
